FAERS Safety Report 24577787 (Version 1)
Quarter: 2024Q4

REPORT INFORMATION
  Report Type: Spontaneous
  Country: CA (occurrence: CA)
  Receive Date: 20241104
  Receipt Date: 20241104
  Transmission Date: 20250115
  Serious: Yes (Other)
  Sender: TEVA
  Company Number: CA-ABBVIE-5979028

PATIENT
  Age: 70 Year
  Sex: Female

DRUGS (2)
  1. ACITRETIN [Suspect]
     Active Substance: ACITRETIN
     Indication: Product used for unknown indication
     Route: 065
  2. HYRIMOZ [Suspect]
     Active Substance: ADALIMUMAB-ADAZ
     Indication: Pemphigus
     Dosage: SOLUTION PEN
     Route: 058

REACTIONS (6)
  - Abdominal pain [Unknown]
  - Injection site pain [Unknown]
  - Colitis [Unknown]
  - Diarrhoea [Unknown]
  - Malaise [Unknown]
  - Incorrect route of product administration [Unknown]
